FAERS Safety Report 21839054 (Version 1)
Quarter: 2023Q1

REPORT INFORMATION
  Report Type: Spontaneous
  Country: US (occurrence: None)
  Receive Date: 20230108
  Receipt Date: 20230108
  Transmission Date: 20230417
  Serious: Yes (Other)
  Sender: FDA-Public Use
  Company Number: None

PATIENT
  Age: 77 Year
  Sex: Male

DRUGS (1)
  1. VANCOMYCIN [Suspect]
     Active Substance: VANCOMYCIN
     Dates: start: 20221125

REACTIONS (9)
  - Muscle spasms [None]
  - Muscle spasms [None]
  - Pruritus [None]
  - Muscle contractions involuntary [None]
  - Tongue disorder [None]
  - Speech disorder [None]
  - Product use complaint [None]
  - Dysphagia [None]
  - Akathisia [None]

NARRATIVE: CASE EVENT DATE: 20221125
